FAERS Safety Report 10254468 (Version 1)
Quarter: 2014Q2

REPORT INFORMATION
  Report Type: Spontaneous
  Country: US (occurrence: US)
  Receive Date: 20140624
  Receipt Date: 20140624
  Transmission Date: 20141212
  Serious: No
  Sender: FDA-Public Use
  Company Number: US-BIOGENIDEC-2014BI057909

PATIENT
  Age: 45 Year
  Sex: Female

DRUGS (4)
  1. TECFIDERA [Suspect]
     Indication: MULTIPLE SCLEROSIS
     Route: 048
  2. DEPAKOTE [Concomitant]
  3. PROVIGIL [Concomitant]
  4. EXFORGE [Concomitant]

REACTIONS (3)
  - Musculoskeletal pain [Unknown]
  - Dyspnoea [Unknown]
  - Muscle fatigue [Unknown]
